FAERS Safety Report 23874188 (Version 2)
Quarter: 2024Q2

REPORT INFORMATION
  Report Type: Other
  Country: CN (occurrence: None)
  Receive Date: 20240520
  Receipt Date: 20240522
  Transmission Date: 20240716
  Serious: Yes (Death, Hospitalization)
  Sender: FDA-Public Use
  Company Number: CN-ROCHE-3547600

PATIENT
  Age: 55 Year
  Sex: Male
  Weight: 52 kg

DRUGS (1)
  1. POLIVY [Suspect]
     Active Substance: POLATUZUMAB VEDOTIN-PIIQ
     Indication: Diffuse large B-cell lymphoma
     Dosage: 30 MG PER VIAL
     Route: 041
     Dates: start: 20240221, end: 20240221

REACTIONS (2)
  - Disease progression [Fatal]
  - Pyrexia [Unknown]

NARRATIVE: CASE EVENT DATE: 20240415
